FAERS Safety Report 5330131-3 (Version None)
Quarter: 2007Q2

REPORT INFORMATION
  Report Type: 
  Country: None (occurrence: None)
  Receive Date: 20070521
  Receipt Date: 20070518
  Transmission Date: 20071010
  Serious: Yes (Death)
  Sender: FDA-Public Use
  Company Number: DE-BRISTOL-MYERS SQUIBB COMPANY-13774518

PATIENT
  Age: 87 Year
  Sex: Female
  Weight: 52 kg

DRUGS (1)
  1. CARBIDOPA + LEVODOPA [Suspect]
     Indication: PARKINSON'S DISEASE
     Dates: start: 20010101, end: 20070301

REACTIONS (1)
  - DEATH [None]
